FAERS Safety Report 5981951-3 (Version None)
Quarter: 2008Q4

REPORT INFORMATION
  Report Type: 
  Country: None (occurrence: None)
  Receive Date: 20081202
  Receipt Date: 20081117
  Transmission Date: 20090506
  Serious: Yes (Hospitalization)
  Sender: FDA-Public Use
  Company Number: KV200800283

PATIENT
  Age: 55 Year
  Sex: Female
  Weight: 86.2 kg

DRUGS (4)
  1. MORPHINE SULFATE(MORPHINE SULFATE) SLOW RELEASE TABLET, 30MG [Suspect]
     Indication: PAIN
     Dosage: 15 MG, BID, ORAL
     Route: 048
     Dates: end: 20081101
  2. AVALIDE (HYDROCHLOROTHIAZIDE, IRBESARTAN), 300/25 MG [Concomitant]
  3. LYRICA (PREGABALIN), 150 MG [Concomitant]
  4. AVALIDE (HYDROCHLOROTHIAZIDE, IRBESARTAN), 300/12.5 MG [Concomitant]

REACTIONS (3)
  - BLOOD PRESSURE FLUCTUATION [None]
  - DYSPNOEA [None]
  - PNEUMONIA [None]
